FAERS Safety Report 8048838-6 (Version None)
Quarter: 2011Q4

REPORT INFORMATION
  Report Type: 
  Country: None (occurrence: None)
  Receive Date: 20111209
  Receipt Date: 20110818
  Transmission Date: 20120403
  Serious: No
  Sender: FDA-Public Use
  Company Number: 2011SP039221

PATIENT
  Age: 51 Year
  Sex: Female

DRUGS (10)
  1. SEROQUEL [Concomitant]
  2. PEGINTERFERON ALFA-2A [Suspect]
     Indication: PRODUCT USED FOR UNKNOWN INDICATION
  3. POTASSIUM CHLORIDE [Concomitant]
  4. FERROUS SULFATE TAB [Concomitant]
  5. VICTRELIS [Suspect]
     Indication: HEPATITIS C
     Dosage: 2 DDF;Q8H; PO
     Route: 048
     Dates: start: 20110813
  6. RIBAVIRIN [Suspect]
     Indication: PRODUCT USED FOR UNKNOWN INDICATION
  7. BUPROPION HYDROCHLORIDE [Concomitant]
  8. CALCIUM [Concomitant]
  9. SPIRONOLACTONE [Concomitant]
  10. FUROSEMIDE [Concomitant]

REACTIONS (3)
  - FATIGUE [None]
  - NAUSEA [None]
  - DECREASED APPETITE [None]
